FAERS Safety Report 6089178-4 (Version None)
Quarter: 2009Q1

REPORT INFORMATION
  Report Type: 
  Country: None (occurrence: None)
  Receive Date: 20090219
  Receipt Date: 20090128
  Transmission Date: 20090719
  Serious: Yes (Hospitalization)
  Sender: FDA-Public Use
  Company Number: 6048610

PATIENT
  Age: 62 Year
  Sex: Female

DRUGS (4)
  1. LEVOTHYROXINE SODIUM [Suspect]
     Indication: HYPOTHYROIDISM
     Dosage: 1 DOSAGE FORMS (1 DOSAGE FORMS, 1 IN 1 D) ORAL
     Route: 048
  2. DEXAMETHASONE [Suspect]
     Indication: PREMEDICATION
     Dosage: 40 MG (40 MG, DAY 1 TO DAY 4) INTRAVENOUS (NOT OTHERWISE SPECIFIED)
     Route: 042
     Dates: start: 20080519
  3. VELCADE [Concomitant]
  4. SECTRAL [Concomitant]

REACTIONS (1)
  - ATRIAL FIBRILLATION [None]
